FAERS Safety Report 5157547-2 (Version None)
Quarter: 2006Q4

REPORT INFORMATION
  Report Type: 
  Country: None (occurrence: None)
  Receive Date: 20061127
  Receipt Date: 20061120
  Transmission Date: 20070319
  Serious: Yes (Life-Threatening, Hospitalization)
  Sender: FDA-Public Use
  Company Number: FR-GLAXOSMITHKLINE-B0447671A

PATIENT
  Age: 48 Year
  Sex: Female

DRUGS (1)
  1. CLAMOXYL [Suspect]
     Indication: BRONCHITIS ACUTE
     Dosage: 1TAB SINGLE DOSE
     Route: 048
     Dates: start: 20061024, end: 20061024

REACTIONS (11)
  - ABDOMINAL PAIN UPPER [None]
  - ANAPHYLACTIC SHOCK [None]
  - BLOOD PRESSURE DECREASED [None]
  - CIRCULATORY COLLAPSE [None]
  - CYANOSIS [None]
  - DYSPNOEA [None]
  - ERYTHEMA [None]
  - NAUSEA [None]
  - PHARYNGOLARYNGEAL PAIN [None]
  - RALES [None]
  - VOMITING [None]
